FAERS Safety Report 25597005 (Version 1)
Quarter: 2025Q3

REPORT INFORMATION
  Report Type: Spontaneous
  Country: US (occurrence: US)
  Receive Date: 20250723
  Receipt Date: 20250723
  Transmission Date: 20251021
  Serious: Yes (Death)
  Sender: TEVA
  Company Number: US-TEVA-VS-3353846

PATIENT
  Age: 86 Year
  Sex: Male

DRUGS (1)
  1. AJOVY [Suspect]
     Active Substance: FREMANEZUMAB-VFRM
     Indication: Migraine without aura
     Dosage: ROUTE: UNDER THE SKIN, 225/1.5MG/ML
     Route: 065

REACTIONS (2)
  - Death [Fatal]
  - Product use issue [Unknown]
